FAERS Safety Report 23848746 (Version 1)
Quarter: 2024Q2

REPORT INFORMATION
  Report Type: Spontaneous
  Country: US (occurrence: US)
  Receive Date: 20240513
  Receipt Date: 20240513
  Transmission Date: 20240716
  Serious: No
  Sender: FDA-Public Use
  Company Number: US-PFIZER INC-202400105555

PATIENT
  Sex: Female

DRUGS (1)
  1. NURTEC ODT [Suspect]
     Active Substance: RIMEGEPANT SULFATE
     Indication: Migraine with aura
     Dosage: UNK

REACTIONS (6)
  - Weight decreased [Unknown]
  - Peripheral coldness [Unknown]
  - Skin discolouration [Unknown]
  - Asthenia [Unknown]
  - Gait inability [Unknown]
  - Feeling drunk [Unknown]
